FAERS Safety Report 6875719-3 (Version None)
Quarter: 2010Q3

REPORT INFORMATION
  Report Type: 
  Country: None (occurrence: None)
  Receive Date: 20100727
  Receipt Date: 20070523
  Transmission Date: 20110219
  Serious: No
  Sender: FDA-Public Use
  Company Number: US-PFIZER INC-2007041892

PATIENT
  Sex: Male

DRUGS (16)
  1. CELEBREX [Suspect]
  2. XOPENEX [Suspect]
     Indication: ASTHMA
     Dosage: 2 EVERY NA DAYS1.25 MG/3ML
     Route: 055
  3. XOPENEX [Suspect]
     Indication: DYSPNOEA
     Dosage: 1 EVERY NA DAYS1.25 MG/3ML
     Route: 055
     Dates: start: 20070420
  4. DESLORATADINE [Concomitant]
  5. NEXIUM [Concomitant]
  6. ACETYLSALICYLIC ACID SRT [Concomitant]
  7. GUAIFENESIN [Concomitant]
  8. EPINEPHRINE [Concomitant]
  9. OXYCODONE [Concomitant]
  10. VYTORIN [Concomitant]
  11. MONTELUKAST SODIUM [Concomitant]
  12. ADVAIR DISKUS 100/50 [Concomitant]
  13. TIOTROPIUM BROMIDE [Concomitant]
  14. BENICAR [Concomitant]
  15. SULAR [Concomitant]
  16. PLAVIX [Concomitant]

REACTIONS (3)
  - FEELING JITTERY [None]
  - PSYCHOMOTOR HYPERACTIVITY [None]
  - TREMOR [None]
